FAERS Safety Report 5741940-0 (Version None)
Quarter: 2008Q2

REPORT INFORMATION
  Report Type: 
  Country: None (occurrence: None)
  Receive Date: 20080519
  Receipt Date: 20071115
  Transmission Date: 20081010
  Serious: No
  Sender: FDA-Public Use
  Company Number: US-KINGPHARMUSA00001-K200701479

PATIENT

DRUGS (4)
  1. TAPAZOLE [Suspect]
     Indication: HYPERTHYROIDISM
     Dosage: 10 MG BID
     Route: 048
     Dates: start: 20071025
  2. AMIODARONE HCL [Concomitant]
     Dosage: 200 MG, QD
  3. HYDROCODONE BITARTRATE [Concomitant]
     Dosage: 5 MG, BID
  4. SUPPLEMENTS (UNSPECIFIED) [Concomitant]
     Dosage: UNK, UNK

REACTIONS (1)
  - TRI-IODOTHYRONINE INCREASED [None]
